FAERS Safety Report 6986083-3 (Version None)
Quarter: 2010Q3

REPORT INFORMATION
  Report Type: 
  Country: None (occurrence: None)
  Receive Date: 20100910
  Receipt Date: 20100901
  Transmission Date: 20110219
  Serious: Yes (Other)
  Sender: FDA-Public Use
  Company Number: 8044134

PATIENT
  Sex: Male
  Weight: 3.1 kg

DRUGS (4)
  1. KEPPRA [Suspect]
     Indication: EPILEPSY
     Dosage: 1000 MG, DAILY TRANSPLACENTAL
     Route: 064
  2. CLOMID [Concomitant]
  3. GLUCOPHAGE [Concomitant]
  4. PRENATAL VITAMINS [Concomitant]

REACTIONS (3)
  - GROSS MOTOR DELAY [None]
  - MATERNAL DRUGS AFFECTING FOETUS [None]
  - POSITIONAL PLAGIOCEPHALY [None]
